FAERS Safety Report 4565180-6 (Version None)
Quarter: 2005Q1

REPORT INFORMATION
  Report Type: 
  Country: None (occurrence: None)
  Receive Date: 20050127
  Receipt Date: 20050127
  Transmission Date: 20050727
  Serious: Yes (Hospitalization)
  Sender: FDA-Public Use
  Company Number: None

PATIENT
  Age: 35 Year
  Sex: Female

DRUGS (6)
  1. ZONEGRAN [Suspect]
     Indication: BRAIN NEOPLASM
     Dosage: 100 MG X5 AT BEDTIME
     Dates: start: 20040101
  2. ZONEGRAN [Suspect]
     Indication: EPILEPSY
     Dosage: 100 MG X5 AT BEDTIME
     Dates: start: 20040101
  3. DECADRON [Concomitant]
  4. ZOFRAN [Concomitant]
  5. PEPCID [Concomitant]
  6. KEPPRA [Concomitant]

REACTIONS (3)
  - ACIDOSIS [None]
  - BLOOD BICARBONATE DECREASED [None]
  - CONVULSION [None]
